FAERS Safety Report 15547037 (Version 1)
Quarter: 2018Q4

REPORT INFORMATION
  Report Type: Spontaneous
  Country: US (occurrence: US)
  Receive Date: 20181024
  Receipt Date: 20181024
  Transmission Date: 20190205
  Serious: No
  Sender: FDA-Public Use
  Company Number: US-009507513-1809USA012613

PATIENT
  Age: 49 Year
  Sex: Female

DRUGS (4)
  1. BEVACIZUMAB. [Suspect]
     Active Substance: BEVACIZUMAB
     Indication: HYPOGLYCAEMIA
  2. TEMODAR [Suspect]
     Active Substance: TEMOZOLOMIDE
     Indication: MALIGNANT NEOPLASM OF PLEURA
     Dosage: 150 MILLIGRAM/SQ. METER, ON DAYS 1-7 AND DAYS 15-21 ON A 28-DAY CYCLE
     Route: 048
  3. TEMODAR [Suspect]
     Active Substance: TEMOZOLOMIDE
     Indication: HYPOGLYCAEMIA
  4. BEVACIZUMAB. [Suspect]
     Active Substance: BEVACIZUMAB
     Indication: MALIGNANT NEOPLASM OF PLEURA
     Dosage: 5 MILLIGRAM/KILOGRAM, ON DAY 8 AND DAY 22 ON A 28-DAY CYCLE
     Route: 042

REACTIONS (2)
  - Off label use [Unknown]
  - Nausea [Unknown]
